FAERS Safety Report 25136508 (Version 1)
Quarter: 2025Q1

REPORT INFORMATION
  Report Type: Spontaneous
  Country: CN (occurrence: CN)
  Receive Date: 20250328
  Receipt Date: 20250328
  Transmission Date: 20250409
  Serious: Yes (Hospitalization)
  Sender: AMGEN
  Company Number: CN-PFIZER INC-PV202500035050

PATIENT
  Age: 17 Year
  Sex: Female
  Weight: 65 kg

DRUGS (2)
  1. ETANERCEPT [Suspect]
     Active Substance: ETANERCEPT
     Indication: Symptomatic treatment
     Dosage: 25 MG, 2X/WEEK
     Route: 058
     Dates: start: 20250120, end: 20250213
  2. ETANERCEPT [Suspect]
     Active Substance: ETANERCEPT
     Indication: Immunosuppression
     Route: 065

REACTIONS (4)
  - Dizziness [Recovering/Resolving]
  - Palpitations [Recovering/Resolving]
  - Pyrexia [Recovering/Resolving]
  - Injection site pain [Recovering/Resolving]

NARRATIVE: CASE EVENT DATE: 20250213
